FAERS Safety Report 18339940 (Version 38)
Quarter: 2025Q2

REPORT INFORMATION
  Report Type: Report from Study
  Country: US (occurrence: US)
  Receive Date: 20201002
  Receipt Date: 20250624
  Transmission Date: 20250716
  Serious: Yes (Hospitalization, Other)
  Sender: TAKEDA
  Company Number: US-SHIRE-US202032079

PATIENT
  Age: 63 Year
  Sex: Female
  Weight: 102 kg

DRUGS (106)
  1. HUMAN IMMUNOGLOBULIN G [Suspect]
     Active Substance: HUMAN IMMUNOGLOBULIN G
     Indication: Hypergammaglobulinaemia
     Dosage: 40 GRAM, Q4WEEKS
     Dates: start: 20160809
  2. HUMAN IMMUNOGLOBULIN G [Suspect]
     Active Substance: HUMAN IMMUNOGLOBULIN G
     Indication: Migraine
     Dosage: 45 GRAM, Q4WEEKS
     Dates: start: 20160811
  3. HUMAN IMMUNOGLOBULIN G [Suspect]
     Active Substance: HUMAN IMMUNOGLOBULIN G
     Indication: Immune system disorder
     Dosage: 40 GRAM, Q4WEEKS
  4. HUMAN IMMUNOGLOBULIN G [Suspect]
     Active Substance: HUMAN IMMUNOGLOBULIN G
     Dosage: 40 GRAM, Q4WEEKS
  5. HUMAN IMMUNOGLOBULIN G [Suspect]
     Active Substance: HUMAN IMMUNOGLOBULIN G
     Dosage: 45 GRAM, Q4WEEKS
  6. CORTEF [Concomitant]
     Active Substance: HYDROCORTISONE
  7. ACETAMINOPHEN [Concomitant]
     Active Substance: ACETAMINOPHEN
  8. DIPHENHYDRAMINE [Concomitant]
     Active Substance: DIPHENHYDRAMINE
  9. LIDOCAINE [Concomitant]
     Active Substance: LIDOCAINE
  10. AMPHETAMINE [Concomitant]
     Active Substance: AMPHETAMINE
  11. NYSTATIN [Concomitant]
     Active Substance: NYSTATIN
  12. CLOTRIMAZOLE [Concomitant]
     Active Substance: CLOTRIMAZOLE
  13. FUROSEMIDE [Concomitant]
     Active Substance: FUROSEMIDE
  14. CHLORHEXIDINE [Concomitant]
     Active Substance: CHLORHEXIDINE
  15. HERBALS\TURMERIC [Concomitant]
     Active Substance: HERBALS\TURMERIC
  16. SODIUM CHLORIDE [Concomitant]
     Active Substance: SODIUM CHLORIDE
  17. EPINEPHRINE [Concomitant]
     Active Substance: EPINEPHRINE
  18. COENZYME Q10 [Concomitant]
     Active Substance: DIETARY SUPPLEMENT\UBIDECARENONE
  19. METHOTREXATE [Concomitant]
     Active Substance: METHOTREXATE
  20. SOLU-MEDROL [Concomitant]
     Active Substance: METHYLPREDNISOLONE SODIUM SUCCINATE
  21. PYRIDOXINE [Concomitant]
     Active Substance: PYRIDOXINE
  22. RESTASIS [Concomitant]
     Active Substance: CYCLOSPORINE
  23. VENTOLIN [Concomitant]
     Active Substance: ALBUTEROL SULFATE
     Dosage: UNK UNK, BID
  24. HYDROXYCHLOROQUINE [Concomitant]
     Active Substance: HYDROXYCHLOROQUINE
  25. KRILL OIL [Concomitant]
     Active Substance: DIETARY SUPPLEMENT\KRILL OIL
  26. VITAMIN D2 [Concomitant]
     Active Substance: ERGOCALCIFEROL
  27. COLLAGEN HYDROLYSATE [Concomitant]
  28. NORCO [Concomitant]
     Active Substance: ACETAMINOPHEN\HYDROCODONE BITARTRATE
  29. LUNESTA [Concomitant]
     Active Substance: ESZOPICLONE
  30. AMLODIPINE BESYLATE [Concomitant]
     Active Substance: AMLODIPINE BESYLATE
  31. TROKENDI XR [Concomitant]
     Active Substance: TOPIRAMATE
  32. METHYLPREDNISOLONE [Concomitant]
     Active Substance: METHYLPREDNISOLONE
  33. PYRROLOQUINOLINE QUINONE [Concomitant]
  34. PROTONIX [Concomitant]
     Active Substance: PANTOPRAZOLE SODIUM
  35. LORAZEPAM [Concomitant]
     Active Substance: LORAZEPAM
  36. Contine [Concomitant]
  37. ONDANSETRON [Concomitant]
     Active Substance: ONDANSETRON
  38. LEVOMEFOLIC ACID [Concomitant]
     Active Substance: LEVOMEFOLIC ACID
  39. MAGNESIUM [Concomitant]
     Active Substance: MAGNESIUM
  40. DICLOFENAC [Concomitant]
     Active Substance: DICLOFENAC
  41. SUMATRIPTAN SUCCINATE [Concomitant]
     Active Substance: SUMATRIPTAN SUCCINATE
  42. SYNTHROID [Concomitant]
     Active Substance: LEVOTHYROXINE SODIUM
  43. CYANOCOBALAMIN [Concomitant]
     Active Substance: CYANOCOBALAMIN
  44. ZYRTEC [Concomitant]
     Active Substance: CETIRIZINE HYDROCHLORIDE
  45. ASPIRIN [Concomitant]
     Active Substance: ASPIRIN
  46. CHLORHEXIDINE GLUCONATE [Concomitant]
     Active Substance: CHLORHEXIDINE GLUCONATE
  47. HERBALS\TURMERIC [Concomitant]
     Active Substance: HERBALS\TURMERIC
  48. BUTALBITAL, ACETAMINOPHEN, AND CAFFEINE [Concomitant]
     Active Substance: ACETAMINOPHEN\BUTALBITAL\CAFFEINE
  49. COLLAGEN [Concomitant]
     Active Substance: COLLAGEN
  50. METOPROLOL [Concomitant]
     Active Substance: METOPROLOL
  51. AMLODIPINE [Concomitant]
     Active Substance: AMLODIPINE BESYLATE
  52. TOPIRAMATE [Concomitant]
     Active Substance: TOPIRAMATE
  53. MS CONTIN [Concomitant]
     Active Substance: MORPHINE SULFATE
  54. SUMATRIPTAN [Concomitant]
     Active Substance: SUMATRIPTAN
  55. BUMETANIDE [Concomitant]
     Active Substance: BUMETANIDE
  56. CHROMIUM [Concomitant]
     Active Substance: CHROMIC CHLORIDE\CHROMIUM
  57. DULOXETINE HYDROCHLORIDE [Concomitant]
     Active Substance: DULOXETINE HYDROCHLORIDE
  58. PROGESTERONE [Concomitant]
     Active Substance: PROGESTERONE
  59. ZINC [Concomitant]
     Active Substance: ZINC
  60. VITAMIN D3 [Concomitant]
     Active Substance: CHOLECALCIFEROL
  61. ALBUTEROL [Concomitant]
     Active Substance: ALBUTEROL
  62. VITAMIN C [Concomitant]
     Active Substance: ASCORBIC ACID
  63. FLOMAX [Concomitant]
     Active Substance: TAMSULOSIN HYDROCHLORIDE
  64. CELEBREX [Concomitant]
     Active Substance: CELECOXIB
  65. IBUPROFEN [Concomitant]
     Active Substance: IBUPROFEN
  66. BAYER ASPIRIN [Concomitant]
     Active Substance: ASPIRIN
  67. VITAMIN D [Concomitant]
     Active Substance: VITAMIN D NOS
  68. Usnea spp. [Concomitant]
  69. Hcl Plus [Concomitant]
  70. ASPIRIN [Concomitant]
     Active Substance: ASPIRIN
  71. Calcium plus magnesium [Concomitant]
  72. Adrenogen [Concomitant]
  73. BERBERINE [Concomitant]
     Active Substance: BERBERINE
  74. NP THYROID [Concomitant]
     Active Substance: LEVOTHYROXINE\LIOTHYRONINE
  75. Biote dim [Concomitant]
  76. CALCIUM ANTACID [Concomitant]
     Active Substance: CALCIUM CARBONATE
  77. HYDROXYCHLOROQUINE SULFATE [Concomitant]
     Active Substance: HYDROXYCHLOROQUINE SULFATE
  78. VITAMIN B [Concomitant]
     Active Substance: VITAMIN B
  79. CEQUA [Concomitant]
     Active Substance: CYCLOSPORINE
  80. BUTALBITAL [Concomitant]
     Active Substance: BUTALBITAL
  81. DICLOFENAC SODIUM [Concomitant]
     Active Substance: DICLOFENAC SODIUM
  82. ALBUTEROL SULFATE [Concomitant]
     Active Substance: ALBUTEROL SULFATE
  83. ASPIRIN [Concomitant]
     Active Substance: ASPIRIN
  84. FOLIC ACID [Concomitant]
     Active Substance: FOLIC ACID
  85. PROMETHAZINE HYDROCHLORIDE [Concomitant]
     Active Substance: PROMETHAZINE HYDROCHLORIDE
  86. COENZYME Q10 [Concomitant]
     Active Substance: DIETARY SUPPLEMENT\UBIDECARENONE
  87. BIOTIN [Concomitant]
     Active Substance: BIOTIN
  88. FOSAMAX [Concomitant]
     Active Substance: ALENDRONATE SODIUM
  89. PATADAY [Concomitant]
     Active Substance: OLOPATADINE HYDROCHLORIDE
     Dosage: UNK, BID
  90. TOPIRAMATE [Concomitant]
     Active Substance: TOPIRAMATE
  91. MAXALT [Concomitant]
     Active Substance: RIZATRIPTAN BENZOATE
  92. ERGOCALCIFEROL [Concomitant]
     Active Substance: ERGOCALCIFEROL
  93. TESTOSTERONE [Concomitant]
     Active Substance: TESTOSTERONE
  94. Omega [Concomitant]
  95. SPIRONOLACTONE [Concomitant]
     Active Substance: SPIRONOLACTONE
  96. FIORICET [Concomitant]
     Active Substance: ACETAMINOPHEN\BUTALBITAL\CAFFEINE
  97. FLONASE SENSIMIST ALLERGY RELIEF [Concomitant]
     Active Substance: FLUTICASONE FUROATE
  98. HERBALS\HONEY [Concomitant]
     Active Substance: HERBALS\HONEY
  99. SOLU-CORTEF [Concomitant]
     Active Substance: HYDROCORTISONE SODIUM SUCCINATE
  100. DIPHENHYDRAMINE HYDROCHLORIDE [Concomitant]
     Active Substance: DIPHENHYDRAMINE HYDROCHLORIDE
  101. PHENTERMINE HYDROCHLORIDE [Concomitant]
     Active Substance: PHENTERMINE HYDROCHLORIDE
  102. HUMIRA [Concomitant]
     Active Substance: ADALIMUMAB
  103. GUAIFENESIN [Concomitant]
     Active Substance: GUAIFENESIN
  104. PREDNISONE [Concomitant]
     Active Substance: PREDNISONE
  105. SODIUM CHLORIDE [Concomitant]
     Active Substance: SODIUM CHLORIDE
  106. MELATONIN [Concomitant]
     Active Substance: MELATONIN

REACTIONS (33)
  - COVID-19 [Unknown]
  - Nephrolithiasis [Unknown]
  - Pneumonia [Recovered/Resolved]
  - Vaginal haemorrhage [Unknown]
  - Foot deformity [Unknown]
  - Limb injury [Unknown]
  - Fall [Unknown]
  - Pollakiuria [Unknown]
  - Dry eye [Unknown]
  - Productive cough [Unknown]
  - Menstrual disorder [Unknown]
  - Weight abnormal [Unknown]
  - Respiratory tract congestion [Unknown]
  - Injury corneal [Unknown]
  - Neck pain [Unknown]
  - Muscle tightness [Unknown]
  - Bruxism [Unknown]
  - Tenderness [Unknown]
  - Ear infection [Unknown]
  - Sleep apnoea syndrome [Unknown]
  - Sinusitis [Recovered/Resolved]
  - Upper respiratory tract infection [Unknown]
  - Hypoaesthesia [Unknown]
  - Pain [Unknown]
  - Rash pruritic [Unknown]
  - Rhinorrhoea [Unknown]
  - Paraesthesia [Unknown]
  - Rash [Unknown]
  - Oedema [Unknown]
  - Headache [Unknown]
  - Migraine [Unknown]
  - Vomiting [Unknown]
  - Diarrhoea [Unknown]

NARRATIVE: CASE EVENT DATE: 20210311
